FAERS Safety Report 7008947-7 (Version None)
Quarter: 2010Q3

REPORT INFORMATION
  Report Type: 
  Country: None (occurrence: None)
  Receive Date: 20100923
  Receipt Date: 20100914
  Transmission Date: 20110219
  Serious: Yes (Other)
  Sender: FDA-Public Use
  Company Number: PHHY2010JP61430

PATIENT
  Sex: Male

DRUGS (2)
  1. CYCLOSPORINE [Suspect]
     Indication: FOCAL SEGMENTAL GLOMERULOSCLEROSIS
     Dosage: UNK
     Route: 048
  2. CYCLOSPORINE [Suspect]
     Dosage: UNK
     Route: 048

REACTIONS (2)
  - IMMUNOSUPPRESSANT DRUG LEVEL INCREASED [None]
  - RENAL FAILURE ACUTE [None]
